FAERS Safety Report 9569217 (Version 1)
Quarter: 2013Q3

REPORT INFORMATION
  Report Type: Spontaneous
  Country: US (occurrence: US)
  Receive Date: 20130930
  Receipt Date: 20130930
  Transmission Date: 20140515
  Serious: No
  Sender: FDA-Public Use
  Company Number: US-AMGEN-USASP2013058479

PATIENT
  Age: 31 Year
  Sex: Female
  Weight: 58.05 kg

DRUGS (4)
  1. ENBREL [Suspect]
     Indication: PRODUCT USED FOR UNKNOWN INDICATION
     Dosage: 50 MG, QWK
     Route: 058
  2. ALEVE [Concomitant]
     Dosage: 220 MG, UNK
  3. MULTIVITAMINS, PLAIN [Concomitant]
     Dosage: UNK
  4. LUTERA [Concomitant]
     Dosage: UNK

REACTIONS (1)
  - Arthralgia [Unknown]
